FAERS Safety Report 4713417-2 (Version None)
Quarter: 2005Q3

REPORT INFORMATION
  Report Type: 
  Country: None (occurrence: None)
  Receive Date: 20050711
  Receipt Date: 20050622
  Transmission Date: 20060218
  Serious: Yes (Hospitalization)
  Sender: FDA-Public Use
  Company Number: 215616

PATIENT
  Age: 65 Year

DRUGS (5)
  1. MABTHERA                                                 (RITUXIMAB) [Suspect]
     Indication: NON-HODGKIN'S LYMPHOMA
     Dates: end: 20050523
  2. CYCLOPHOSPHAMIDE [Suspect]
     Indication: NON-HODGKIN'S LYMPHOMA
  3. DOXORUBICIN HCL [Suspect]
     Indication: NON-HODGKIN'S LYMPHOMA
  4. VINCRISTINE [Suspect]
     Indication: NON-HODGKIN'S LYMPHOMA
  5. PREDNISONE [Suspect]
     Indication: NON-HODGKIN'S LYMPHOMA

REACTIONS (2)
  - ANAL ABSCESS [None]
  - FEBRILE NEUTROPENIA [None]
